FAERS Safety Report 7133052-9 (Version None)
Quarter: 2010Q4

REPORT INFORMATION
  Report Type: 
  Country: None (occurrence: None)
  Receive Date: 20101202
  Receipt Date: 20101125
  Transmission Date: 20110411
  Serious: Yes (Hospitalization)
  Sender: FDA-Public Use
  Company Number: A0897199A

PATIENT
  Sex: Female
  Weight: 69 kg

DRUGS (7)
  1. SERETIDE [Suspect]
     Indication: CHRONIC OBSTRUCTIVE PULMONARY DISEASE
     Dosage: 1PUFF TWICE PER DAY
     Dates: start: 20050101
  2. DIOVAN [Concomitant]
     Dosage: 1TAB PER DAY
     Dates: start: 20090101
  3. HYDROCHLOROTHIAZIDE [Concomitant]
     Dosage: 1TAB PER DAY
     Dates: start: 20090101
  4. TRIPTANOL [Concomitant]
     Dosage: 2TAB AT NIGHT
     Dates: start: 19890101
  5. OMEPRAZOLE [Concomitant]
     Dosage: 1TAB PER DAY
  6. SIMVASTATIN [Concomitant]
     Dosage: 1TAB AT NIGHT
     Dates: start: 20100801
  7. RASILEZ [Concomitant]
     Dosage: .5TAB AT NIGHT
     Dates: start: 20090101

REACTIONS (2)
  - DYSPNOEA [None]
  - TREATMENT NONCOMPLIANCE [None]
